FAERS Safety Report 24368939 (Version 3)
Quarter: 2024Q4

REPORT INFORMATION
  Report Type: Report from Study
  Country: GR (occurrence: GR)
  Receive Date: 20240927
  Receipt Date: 20241003
  Transmission Date: 20250114
  Serious: Yes (Hospitalization, Other)
  Sender: ABBVIE
  Company Number: GR-ABBVIE-5824950

PATIENT
  Age: 85 Year
  Sex: Male
  Weight: 85 kg

DRUGS (3)
  1. CARBIDOPA\LEVODOPA [Suspect]
     Active Substance: CARBIDOPA\LEVODOPA
     Indication: Parkinson^s disease
     Dosage: MORNING DOSE: 5.6ML; CONTINUOUS RATE: 1.0ML/H; EXTRA DOSE: 0.5ML
     Route: 050
  2. CARBIDOPA\LEVODOPA [Suspect]
     Active Substance: CARBIDOPA\LEVODOPA
     Dosage: MORNING DOSE: 8.6ML; CONTINUOUS RATE: 1.0ML/H; EXTRA DOSE: 0.5ML LAST ADMIN DATE JUN 2024
     Route: 050
     Dates: start: 20240625
  3. CARBIDOPA\LEVODOPA [Suspect]
     Active Substance: CARBIDOPA\LEVODOPA
     Dosage: MORNING DOSE: 8.6ML; CONTINUOUS RATE: 1.0ML/H; EXTRA DOSE: 0.5ML FIRST ADMIN DATE 2024
     Route: 050

REACTIONS (14)
  - Clostridial sepsis [Unknown]
  - Abdominal pain [Recovered/Resolved]
  - Abdominal distension [Not Recovered/Not Resolved]
  - Abdominal pain [Unknown]
  - Dysphonia [Unknown]
  - COVID-19 [Recovered/Resolved]
  - Pyrexia [Recovered/Resolved]
  - Stoma site erythema [Unknown]
  - Stoma site pain [Unknown]
  - Escherichia sepsis [Not Recovered/Not Resolved]
  - Pyrexia [Recovering/Resolving]
  - Gastroenteritis Escherichia coli [Not Recovered/Not Resolved]
  - Clostridium difficile colitis [Not Recovered/Not Resolved]
  - Pain [Not Recovered/Not Resolved]

NARRATIVE: CASE EVENT DATE: 20240101
